FAERS Safety Report 13872728 (Version 5)
Quarter: 2019Q3

REPORT INFORMATION
  Report Type: Report from Study
  Country: JP (occurrence: JP)
  Receive Date: 20170816
  Receipt Date: 20190923
  Transmission Date: 20191004
  Serious: Yes (Hospitalization, Disabling)
  Sender: FDA-Public Use
  Company Number: JP-ACTELION-A-CH2017-157770

PATIENT
  Age: 36 Year
  Sex: Female

DRUGS (25)
  1. MEDROL [Suspect]
     Active Substance: METHYLPREDNISOLONE
     Dosage: UNK
     Route: 048
     Dates: start: 20170222, end: 20171003
  2. XELJANZ [Concomitant]
     Active Substance: TOFACITINIB CITRATE
  3. OPSUMIT [Suspect]
     Active Substance: MACITENTAN
     Indication: PULMONARY ARTERIAL HYPERTENSION
     Dosage: 10 MG, QD
     Route: 048
     Dates: start: 20160622, end: 20190102
  4. OPSUMIT [Suspect]
     Active Substance: MACITENTAN
     Dosage: 10 MG, QD
     Route: 048
     Dates: start: 20190322
  5. MEDROL [Suspect]
     Active Substance: METHYLPREDNISOLONE
     Indication: MIXED CONNECTIVE TISSUE DISEASE
     Dosage: 8 MG, QD
     Route: 048
     Dates: start: 20140625, end: 20140726
  6. MEDROL [Suspect]
     Active Substance: METHYLPREDNISOLONE
     Dosage: 30 MG, BID
     Route: 048
     Dates: start: 20190119, end: 20190411
  7. MEDROL [Suspect]
     Active Substance: METHYLPREDNISOLONE
     Dosage: 12 MG, BID
     Route: 048
     Dates: start: 20190412, end: 20190613
  8. ADCIRCA [Concomitant]
     Active Substance: TADALAFIL
  9. ALDACTONE [Concomitant]
     Active Substance: SPIRONOLACTONE
  10. MEDROL [Suspect]
     Active Substance: METHYLPREDNISOLONE
     Dosage: UNK
     Route: 048
     Dates: start: 20171004
  11. MEDROL [Suspect]
     Active Substance: METHYLPREDNISOLONE
     Dosage: 9 MG, BID
     Route: 048
     Dates: start: 20190614
  12. LASIX [Concomitant]
     Active Substance: FUROSEMIDE
  13. FEXOFENADINE [Concomitant]
     Active Substance: FEXOFENADINE HYDROCHLORIDE
  14. LANSOPRAZOLE. [Concomitant]
     Active Substance: LANSOPRAZOLE
  15. ANDRON [Concomitant]
  16. EPOPROSTENOL ACT [Suspect]
     Active Substance: EPOPROSTENOL
     Dosage: UNK
     Route: 042
     Dates: start: 20170713, end: 20180820
  17. MEDROL [Suspect]
     Active Substance: METHYLPREDNISOLONE
     Dosage: 10 MG, QD
     Route: 048
     Dates: end: 20190103
  18. NIFEDIPINE. [Concomitant]
     Active Substance: NIFEDIPINE
  19. FUROSEMIDE. [Concomitant]
     Active Substance: FUROSEMIDE
  20. SPIRONOLACTONE. [Concomitant]
     Active Substance: SPIRONOLACTONE
  21. MEDROL [Suspect]
     Active Substance: METHYLPREDNISOLONE
     Dosage: UNK
     Route: 048
     Dates: start: 20160727, end: 20170221
  22. EPOPROSTENOL ACT [Suspect]
     Active Substance: EPOPROSTENOL
     Indication: PULMONARY ARTERIAL HYPERTENSION
     Dosage: 10 NG/KG, PER MIN
     Route: 042
     Dates: start: 20140725, end: 20170712
  23. EPOPROSTENOL ACT [Suspect]
     Active Substance: EPOPROSTENOL
     Dosage: UNK
     Route: 042
     Dates: start: 20180821, end: 20181228
  24. MEDROL [Suspect]
     Active Substance: METHYLPREDNISOLONE
     Dosage: 40 MG, BID
     Route: 048
     Dates: start: 20190104, end: 20190118
  25. LOXONIN [Concomitant]
     Active Substance: LOXOPROFEN SODIUM

REACTIONS (7)
  - Platelet count decreased [Recovered/Resolved]
  - Device connection issue [Recovered/Resolved]
  - Catheter management [Unknown]
  - Platelet transfusion [Unknown]
  - Osteonecrosis [Recovered/Resolved with Sequelae]
  - Gait disturbance [Not Recovered/Not Resolved]
  - Immune thrombocytopenic purpura [Recovered/Resolved]

NARRATIVE: CASE EVENT DATE: 20161026
